FAERS Safety Report 17840335 (Version 1)
Quarter: 2020Q2

REPORT INFORMATION
  Report Type: Spontaneous
  Country: US (occurrence: US)
  Receive Date: 20200529
  Receipt Date: 20200529
  Transmission Date: 20200714
  Serious: No
  Sender: FDA-Public Use
  Company Number: US-INDIVIOR LIMITED-INDV-123717-2020

PATIENT
  Age: 54 Year
  Sex: Male

DRUGS (7)
  1. PERSERIS [Suspect]
     Active Substance: RISPERIDONE
     Indication: SCHIZOPHRENIA
     Dosage: 120 MILLIGRAM, QMO (SINGLE INJECTION)
     Route: 058
     Dates: start: 20200107, end: 20200107
  2. INGREZZA [Concomitant]
     Active Substance: VALBENAZINE
     Indication: PRODUCT USED FOR UNKNOWN INDICATION
     Dosage: UNK
     Route: 065
  3. COGENTIN [Suspect]
     Active Substance: BENZTROPINE MESYLATE
     Dosage: 2 MILLIGRAM, BID
     Route: 065
     Dates: start: 20200114
  4. GABAPENTIN. [Suspect]
     Active Substance: GABAPENTIN
     Indication: ANXIETY
     Dosage: 1200 MILLIGRAM, TID
     Route: 048
     Dates: start: 20191021
  5. BACLOFEN. [Concomitant]
     Active Substance: BACLOFEN
     Indication: MUSCLE SPASMS
     Dosage: 10 MG, QID
     Route: 048
     Dates: start: 20200121
  6. SUBOXONE [Suspect]
     Active Substance: BUPRENORPHINE HYDROCHLORIDE\NALOXONE HYDROCHLORIDE
     Indication: DRUG USE DISORDER
     Dosage: 8 MILLIGRAM, BID
     Route: 060
     Dates: start: 20191016
  7. COGENTIN [Suspect]
     Active Substance: BENZTROPINE MESYLATE
     Indication: PARKINSONISM
     Dosage: 1 MILLIGRAM, BID
     Route: 065
     Dates: start: 202001, end: 202001

REACTIONS (3)
  - Somnambulism [Not Recovered/Not Resolved]
  - Parkinsonism [Recovered/Resolved]
  - Inappropriate schedule of product administration [Not Recovered/Not Resolved]

NARRATIVE: CASE EVENT DATE: 20191016
